FAERS Safety Report 9344748 (Version 1)
Quarter: 2013Q2

REPORT INFORMATION
  Report Type: Spontaneous
  Country: US (occurrence: US)
  Receive Date: 20130612
  Receipt Date: 20130612
  Transmission Date: 20140414
  Serious: Yes (Other)
  Sender: FDA-Public Use
  Company Number: US-GLAXOSMITHKLINE-A0797788A

PATIENT
  Age: 72 Year
  Sex: Male

DRUGS (1)
  1. AVANDIA [Suspect]
     Indication: DIABETES MELLITUS
     Dosage: 4MG TWICE PER DAY
     Route: 048

REACTIONS (8)
  - Cardiac failure [Not Recovered/Not Resolved]
  - Cerebrovascular accident [Unknown]
  - Fracture [Unknown]
  - Anaemia [Unknown]
  - Macular oedema [Unknown]
  - Myocardial infarction [Unknown]
  - Blindness unilateral [Unknown]
  - Diabetes mellitus [Unknown]
